FAERS Safety Report 5790134-1 (Version None)
Quarter: 2008Q2

REPORT INFORMATION
  Report Type: 
  Country: None (occurrence: None)
  Receive Date: 20080626
  Receipt Date: 20080318
  Transmission Date: 20081010
  Serious: No
  Sender: FDA-Public Use
  Company Number: A0688844A

PATIENT

DRUGS (1)
  1. ALLI [Suspect]
     Route: 048
     Dates: start: 20070901

REACTIONS (12)
  - ANOREXIA [None]
  - ANXIETY [None]
  - ARTHRALGIA [None]
  - CHANGE OF BOWEL HABIT [None]
  - DISCOMFORT [None]
  - FALL [None]
  - FATIGUE [None]
  - HYPOAESTHESIA [None]
  - INFLUENZA [None]
  - MALAISE [None]
  - SKIN LACERATION [None]
  - WEIGHT INCREASED [None]
